FAERS Safety Report 5531380-1 (Version None)
Quarter: 2007Q4

REPORT INFORMATION
  Report Type: 
  Country: None (occurrence: None)
  Receive Date: 20071128
  Receipt Date: 20071116
  Transmission Date: 20080405
  Serious: Yes (Hospitalization)
  Sender: FDA-Public Use
  Company Number: GXKR2007IL09862

PATIENT
  Age: 40 Year
  Sex: Female
  Weight: 65 kg

DRUGS (6)
  1. CLOZAPINE [Suspect]
     Indication: SCHIZOPHRENIA, PARANOID TYPE
     Dosage: 275 MG, QD; 50 MG, OD
  2. PHENYTOIN [Suspect]
     Indication: GRAND MAL CONVULSION
     Dosage: 1000 MG, ONCE/SINGLE, INTRAVENOUS; 300 MG, ORAL
     Route: 042
  3. DESIPRAMIDE HCL [Suspect]
     Dosage: 100 MG, QD
  4. TRIHEXYPHENIDYL HCL [Suspect]
     Dosage: 1- MG, QD
  5. OXAZEPAM [Concomitant]
  6. PROPRANOLOL [Concomitant]

REACTIONS (6)
  - ATAXIA [None]
  - DIZZINESS [None]
  - DRUG INTERACTION [None]
  - DRUG TOXICITY [None]
  - GRAND MAL CONVULSION [None]
  - NYSTAGMUS [None]
